FAERS Safety Report 20606496 (Version 2)
Quarter: 2022Q1

REPORT INFORMATION
  Report Type: Spontaneous
  Country: DE (occurrence: DE)
  Receive Date: 20220317
  Receipt Date: 20220323
  Transmission Date: 20220423
  Serious: Yes (Hospitalization)
  Sender: FDA-Public Use
  Company Number: DE-NOVARTISPH-NVSC2022DE060795

PATIENT
  Sex: Female

DRUGS (1)
  1. ZOFRAN [Suspect]
     Active Substance: ONDANSETRON HYDROCHLORIDE
     Indication: Vomiting
     Dosage: 8 MG, QD (4 MG LINGUAL, SCHMELZTABLETTE)
     Route: 048

REACTIONS (4)
  - Syncope [Unknown]
  - Muscle twitching [Not Recovered/Not Resolved]
  - Dysphagia [Unknown]
  - Gait disturbance [Unknown]
